FAERS Safety Report 23553768 (Version 1)
Quarter: 2024Q1

REPORT INFORMATION
  Report Type: Spontaneous
  Country: US (occurrence: None)
  Receive Date: 20240221
  Receipt Date: 20240221
  Transmission Date: 20240410
  Serious: Yes (Disabling)
  Sender: FDA-Public Use
  Company Number: None

PATIENT
  Age: 38 Year
  Sex: Male

DRUGS (1)
  1. LEXAPRO [Suspect]
     Active Substance: ESCITALOPRAM OXALATE
     Indication: Anxiety
     Dosage: 1 TABLET DAILY ORAL?
     Route: 048

REACTIONS (5)
  - Erectile dysfunction [None]
  - Anhedonia [None]
  - Loss of libido [None]
  - Peripheral vascular disorder [None]
  - Abdominal discomfort [None]

NARRATIVE: CASE EVENT DATE: 20231005
